FAERS Safety Report 18606414 (Version 1)
Quarter: 2020Q4

REPORT INFORMATION
  Report Type: Spontaneous
  Country: PT (occurrence: PT)
  Receive Date: 20201211
  Receipt Date: 20201211
  Transmission Date: 20210114
  Serious: Yes (Other)
  Sender: FDA-Public Use
  Company Number: PT-ELI_LILLY_AND_COMPANY-PT202012000984

PATIENT
  Age: 63 Year
  Sex: Male

DRUGS (8)
  1. GEMCITABINE HYDROCHLORIDE. [Suspect]
     Active Substance: GEMCITABINE HYDROCHLORIDE
     Indication: TRANSITIONAL CELL CARCINOMA URETHRA
  2. CISPLATINE [Suspect]
     Active Substance: CISPLATIN
     Indication: BLADDER TRANSITIONAL CELL CARCINOMA
     Dosage: UNK UNK, UNKNOWN
     Route: 065
     Dates: start: 201706
  3. MYCOBACTERIUM BOVIS (BACILLUS OF CALMETTE AND GUERIN) LIVE ATTENUATED [Suspect]
     Active Substance: BACILLUS CALMETTE-GUERIN SUBSTRAIN TICE LIVE ANTIGEN
     Indication: TRANSITIONAL CELL CARCINOMA URETHRA
     Dosage: UNK UNK, UNKNOWN
     Route: 043
     Dates: start: 201611
  4. MYCOBACTERIUM BOVIS (BACILLUS OF CALMETTE AND GUERIN) LIVE ATTENUATED [Suspect]
     Active Substance: BACILLUS CALMETTE-GUERIN SUBSTRAIN TICE LIVE ANTIGEN
     Indication: BLADDER TRANSITIONAL CELL CARCINOMA
  5. GEMCITABINE HYDROCHLORIDE. [Suspect]
     Active Substance: GEMCITABINE HYDROCHLORIDE
     Indication: BLADDER TRANSITIONAL CELL CARCINOMA
     Dosage: UNK UNK, UNKNOWN
     Route: 065
     Dates: start: 201706
  6. CISPLATINE [Suspect]
     Active Substance: CISPLATIN
     Indication: TRANSITIONAL CELL CARCINOMA URETHRA
  7. PEMBROLIZUMAB. [Suspect]
     Active Substance: PEMBROLIZUMAB
     Indication: TRANSITIONAL CELL CARCINOMA URETHRA
     Dosage: 200 MG, EVERY THREE WEEKS
     Route: 065
     Dates: start: 201805
  8. PEMBROLIZUMAB. [Suspect]
     Active Substance: PEMBROLIZUMAB
     Indication: BLADDER TRANSITIONAL CELL CARCINOMA

REACTIONS (4)
  - Blood glucose increased [Unknown]
  - Stoma site dermatitis [Recovered/Resolved]
  - Malignant neoplasm progression [Unknown]
  - Transitional cell carcinoma recurrent [Unknown]

NARRATIVE: CASE EVENT DATE: 201902
